FAERS Safety Report 11811912 (Version 3)
Quarter: 2016Q3

REPORT INFORMATION
  Report Type: Spontaneous
  Country: US (occurrence: US)
  Receive Date: 20151208
  Receipt Date: 20160729
  Transmission Date: 20161109
  Serious: Yes (Hospitalization, Disabling)
  Sender: FDA-Public Use
  Company Number: US-ENDO PHARMACEUTICALS INC.-2015-004566

PATIENT
  Age: 51 Year
  Sex: Male
  Weight: 122.58 kg

DRUGS (12)
  1. TESTIM [Suspect]
     Active Substance: TESTOSTERONE
     Route: 062
     Dates: start: 2013
  2. FORTESTA [Suspect]
     Active Substance: TESTOSTERONE
     Route: 062
     Dates: start: 2013
  3. ANDROGEL [Suspect]
     Active Substance: TESTOSTERONE
     Indication: ANDROGEN REPLACEMENT THERAPY
     Route: 065
     Dates: start: 2009
  4. TESTIM [Suspect]
     Active Substance: TESTOSTERONE
     Route: 062
     Dates: start: 2012
  5. FORTESTA [Suspect]
     Active Substance: TESTOSTERONE
     Route: 062
     Dates: start: 2014
  6. ANDROGEL [Suspect]
     Active Substance: TESTOSTERONE
     Route: 062
     Dates: start: 2013
  7. ANDROGEL [Suspect]
     Active Substance: TESTOSTERONE
     Route: 062
     Dates: start: 2014
  8. ANDROGEL [Suspect]
     Active Substance: TESTOSTERONE
     Route: 062
     Dates: start: 2012
  9. TESTIM [Suspect]
     Active Substance: TESTOSTERONE
     Indication: ANDROGEN REPLACEMENT THERAPY
     Route: 062
     Dates: start: 2009
  10. FORTESTA [Suspect]
     Active Substance: TESTOSTERONE
     Indication: ANDROGEN REPLACEMENT THERAPY
     Route: 061
     Dates: start: 2009
  11. TESTIM [Suspect]
     Active Substance: TESTOSTERONE
     Route: 062
     Dates: start: 2014
  12. FORTESTA [Suspect]
     Active Substance: TESTOSTERONE
     Route: 062
     Dates: start: 2012

REACTIONS (7)
  - Cholelithiasis [Not Recovered/Not Resolved]
  - Upper respiratory tract infection [Unknown]
  - Pneumonia [Not Recovered/Not Resolved]
  - Cholestasis [Not Recovered/Not Resolved]
  - Hepatitis [Not Recovered/Not Resolved]
  - Nephrolithiasis [Not Recovered/Not Resolved]
  - Abdominal pain [Not Recovered/Not Resolved]

NARRATIVE: CASE EVENT DATE: 20140305
